FAERS Safety Report 8738302 (Version 2)
Quarter: 2013Q4

REPORT INFORMATION
  Report Type: Spontaneous
  Country: US (occurrence: US)
  Receive Date: 20120823
  Receipt Date: 20131101
  Transmission Date: 20140711
  Serious: No
  Sender: FDA-Public Use
  Company Number: US-009507513-1207USA012394

PATIENT
  Age: 75 Year
  Sex: Female

DRUGS (5)
  1. PRINIVIL [Suspect]
     Route: 048
  2. SYMBICORT [Suspect]
     Dosage: UNK DF, UNK
     Route: 055
  3. SYMBICORT [Suspect]
     Dosage: 1 DF, QD
     Route: 055
  4. METOPROLOL [Suspect]
  5. GABAPENTIN [Concomitant]
     Route: 048

REACTIONS (2)
  - Intentional drug misuse [Unknown]
  - Dyspnoea [Unknown]
